FAERS Safety Report 8372565-9 (Version None)
Quarter: 2012Q2

REPORT INFORMATION
  Report Type: 
  Country: None (occurrence: None)
  Receive Date: 20120521
  Receipt Date: 20120515
  Transmission Date: 20120825
  Serious: Yes (Other)
  Sender: FDA-Public Use
  Company Number: PHFR2012GB002976

PATIENT
  Age: 52 Year
  Sex: Female

DRUGS (2)
  1. TEGRETOL [Suspect]
     Indication: EPILEPSY
     Dosage: 250 MG, UNK
     Dates: start: 19870301, end: 19870401
  2. DIPROSONE [Concomitant]

REACTIONS (9)
  - MYALGIA [None]
  - SKIN ATROPHY [None]
  - ANAPHYLACTIC SHOCK [None]
  - HYPERSENSITIVITY [None]
  - THYROID DISORDER [None]
  - VISUAL IMPAIRMENT [None]
  - PRURITUS [None]
  - MOUTH HAEMORRHAGE [None]
  - SKIN EXFOLIATION [None]
